FAERS Safety Report 20297801 (Version 1)
Quarter: 2022Q1

REPORT INFORMATION
  Report Type: Report from Study
  Country: CA (occurrence: CA)
  Receive Date: 20220105
  Receipt Date: 20220105
  Transmission Date: 20220423
  Serious: Yes (Hospitalization, Other)
  Sender: FDA-Public Use
  Company Number: CA-BAYER-2022A000066

PATIENT

DRUGS (1)
  1. EYLEA [Suspect]
     Active Substance: AFLIBERCEPT
     Indication: Neovascular age-related macular degeneration
     Dosage: UNK, TOTAL OF 4 INJECTIONS TAKEN
     Route: 031
     Dates: start: 20201023

REACTIONS (3)
  - Eye infection [Recovered/Resolved with Sequelae]
  - Eye operation [Recovered/Resolved with Sequelae]
  - Blindness [Not Recovered/Not Resolved]
